FAERS Safety Report 19969142 (Version 2)
Quarter: 2021Q4

REPORT INFORMATION
  Report Type: Spontaneous
  Country: US (occurrence: US)
  Receive Date: 20211019
  Receipt Date: 20211206
  Transmission Date: 20220303
  Serious: No
  Sender: FDA-Public Use
  Company Number: US-UROGEN PHARMA LTD.-2021-UGN-000082

PATIENT
  Age: 73 Year
  Sex: Female

DRUGS (28)
  1. JELMYTO [Suspect]
     Active Substance: MITOMYCIN
     Indication: Product used for unknown indication
     Dosage: 56 MG, ONE TIMES PER WEEK (INSTILLATION INTO R URETER)
     Dates: start: 20210817, end: 20210817
  2. JELMYTO [Suspect]
     Active Substance: MITOMYCIN
     Dosage: 56 MG, ONE TIMES PER WEEK (INSTILLATION INTO R URETER)
     Dates: start: 20210831, end: 20210831
  3. JELMYTO [Suspect]
     Active Substance: MITOMYCIN
     Dosage: 56 MG, ONE TIMES PER WEEK (INSTILLATION INTO R URETER)
     Dates: start: 20210921, end: 20210921
  4. JELMYTO [Suspect]
     Active Substance: MITOMYCIN
     Dosage: 56 MG, ONE TIMES PER WEEK (INSTILLATION INTO R URETER)
     Dates: start: 20210928, end: 20210928
  5. JELMYTO [Suspect]
     Active Substance: MITOMYCIN
     Dosage: 56 MG, ONE TIMES PER WEEK (INSTILLATION INTO R URETER)
     Dates: start: 20211012, end: 20211012
  6. TYLENOL [Concomitant]
     Active Substance: ACETAMINOPHEN
     Indication: Product used for unknown indication
     Dosage: 650 MG, Q6H (EVERY 6 HOURS PRN)
     Route: 048
  7. NORVASC [Concomitant]
     Active Substance: AMLODIPINE BESYLATE
     Indication: Product used for unknown indication
     Dosage: 2.5 MG, QD (DAILY)
     Route: 048
  8. ASPIRIN [Concomitant]
     Active Substance: ASPIRIN
     Indication: Product used for unknown indication
     Dosage: 325 MG, QD (DAILY)
     Route: 048
  9. BENADRYL [Concomitant]
     Active Substance: DIPHENHYDRAMINE HYDROCHLORIDE
     Indication: Product used for unknown indication
     Dosage: 25 MG, (NIGHTLY PRN)
     Route: 048
  10. BENADRYL [Concomitant]
     Active Substance: DIPHENHYDRAMINE HYDROCHLORIDE
     Indication: Product used for unknown indication
     Dosage: 50 MG
     Route: 048
     Dates: start: 20211006
  11. ESTRACE [Concomitant]
     Active Substance: ESTRADIOL
     Indication: Product used for unknown indication
     Dosage: 2 GRAM, QD (DAILY)
     Route: 067
  12. REPATHA [Concomitant]
     Active Substance: EVOLOCUMAB
     Indication: Product used for unknown indication
     Dosage: 140 MG (EVERY 14 DAYS)
     Route: 058
  13. ZETIA [Concomitant]
     Active Substance: EZETIMIBE
     Indication: Product used for unknown indication
     Dosage: 10 MG (NIGHTLY)
     Route: 048
  14. FERROUS SULFATE [Concomitant]
     Active Substance: FERROUS SULFATE
     Indication: Product used for unknown indication
     Dosage: 325 MG, BID (2 PER DAY)
     Route: 048
  15. NEURONTIN [Concomitant]
     Active Substance: GABAPENTIN
     Indication: Product used for unknown indication
     Dosage: 900 MG, BID (2 PER DAY)
     Route: 048
  16. LOPID [Concomitant]
     Active Substance: GEMFIBROZIL
     Indication: Product used for unknown indication
     Dosage: 600 MG, (2 TIMES DAILY BEFORE MEALS)
     Route: 048
  17. NOVOLOG [Concomitant]
     Active Substance: INSULIN ASPART
     Indication: Product used for unknown indication
     Dosage: 45 UNITS, (3 TIMES DAILY BEFORE MEALS)
     Route: 058
  18. LANTUS [Concomitant]
     Active Substance: INSULIN GLARGINE
     Indication: Product used for unknown indication
     Dosage: 52 UNITS, BID (2 TIMES DAILY)
     Route: 058
  19. ZESTRIL,PRINIVIL [Concomitant]
     Indication: Product used for unknown indication
     Dosage: 40 MG, QD (DAILY)
     Route: 048
  20. LORATADINE [Concomitant]
     Active Substance: LORATADINE
     Indication: Product used for unknown indication
     Dosage: 10 MG, QD (DAILY)
     Route: 048
  21. URO-MAG [Concomitant]
     Indication: Product used for unknown indication
     Dosage: 400 MG (EVERY OTHER DAY)
     Route: 048
  22. MACRODANTIN [Concomitant]
     Active Substance: NITROFURANTOIN
     Indication: Product used for unknown indication
     Dosage: 100 MG (NIGHTLY)
     Route: 048
     Dates: start: 20210921
  23. OMEGA-3 FATTY ACIDS-FISH OIL [Concomitant]
     Indication: Product used for unknown indication
     Dosage: UNK, BID (2 TIMES DAILY)
     Route: 048
  24. PROTONIX [Concomitant]
     Active Substance: PANTOPRAZOLE SODIUM
     Indication: Product used for unknown indication
     Dosage: 40 MG, QD (DAILY)
     Route: 048
  25. DELTASONE [Concomitant]
     Active Substance: PREDNISONE
     Indication: Product used for unknown indication
     Dosage: 20 MG
     Route: 048
     Dates: start: 20210929
  26. DELTASONE [Concomitant]
     Active Substance: PREDNISONE
     Indication: Product used for unknown indication
     Dosage: 50 MG
     Route: 048
     Dates: start: 20211006
  27. ZYRTEC [Concomitant]
     Active Substance: CETIRIZINE HYDROCHLORIDE
     Dosage: 20 MG, QD (DAILY)
     Route: 048
  28. ALLEGRA [Concomitant]
     Active Substance: FEXOFENADINE HYDROCHLORIDE
     Dosage: 360 MG, QD (DAILY)
     Route: 048

REACTIONS (2)
  - Pruritus [Not Recovered/Not Resolved]
  - Blood creatinine increased [Not Recovered/Not Resolved]

NARRATIVE: CASE EVENT DATE: 20210928
